FAERS Safety Report 8248958-7 (Version None)
Quarter: 2012Q2

REPORT INFORMATION
  Report Type: 
  Country: None (occurrence: None)
  Receive Date: 20120402
  Receipt Date: 20120323
  Transmission Date: 20120825
  Serious: Yes (Hospitalization)
  Sender: FDA-Public Use
  Company Number: US-BIOGENIDEC-2009BI016861

PATIENT
  Age: 40 Year
  Sex: Female
  Weight: 58 kg

DRUGS (1)
  1. TYSABRI [Suspect]
     Indication: MULTIPLE SCLEROSIS
     Route: 042
     Dates: start: 20071102

REACTIONS (5)
  - MENORRHAGIA [None]
  - HEART RATE INCREASED [None]
  - ASTHENIA [None]
  - POST PROCEDURAL HAEMORRHAGE [None]
  - PALLOR [None]
